FAERS Safety Report 6142568-3 (Version None)
Quarter: 2009Q2

REPORT INFORMATION
  Report Type: 
  Country: None (occurrence: None)
  Receive Date: 20090402
  Receipt Date: 20090402
  Transmission Date: 20091009
  Serious: Yes (Hospitalization)
  Sender: FDA-Public Use
  Company Number: None

PATIENT
  Age: 62 Year
  Sex: Male

DRUGS (2)
  1. ACETAMINOPHEN W/ PROPOXYPHENE HCL [Suspect]
     Indication: PAIN
     Dosage: 200/1300 MG TID PO
     Route: 048
     Dates: start: 20011005, end: 20080505
  2. LORAZEPAM [Suspect]
     Indication: ANXIETY
     Dosage: 0.5 MG TID PO
     Route: 048
     Dates: start: 20061117

REACTIONS (4)
  - FALL [None]
  - HYPOXIA [None]
  - LOSS OF CONSCIOUSNESS [None]
  - SYNCOPE [None]
